FAERS Safety Report 5842982-7 (Version None)
Quarter: 2008Q3

REPORT INFORMATION
  Report Type: 
  Country: None (occurrence: None)
  Receive Date: 20080808
  Receipt Date: 20080724
  Transmission Date: 20090109
  Serious: Yes (Other)
  Sender: FDA-Public Use
  Company Number: 2008SP013217

PATIENT
  Age: 36 Year
  Sex: Female

DRUGS (2)
  1. REBETOL [Suspect]
     Indication: HEPATITIS C
     Dates: start: 20050725, end: 20051220
  2. PEGASYS [Suspect]
     Indication: HEPATITIS C
     Dates: start: 20050725, end: 20051220

REACTIONS (2)
  - LYMPHADENOPATHY [None]
  - THROMBOCYTOPENIA [None]
